FAERS Safety Report 7860182-6 (Version None)
Quarter: 2011Q4

REPORT INFORMATION
  Report Type: 
  Country: None (occurrence: None)
  Receive Date: 20111027
  Receipt Date: 20111024
  Transmission Date: 20120403
  Serious: Yes (Other)
  Sender: FDA-Public Use
  Company Number: US-SANOFI-AVENTIS-2011SA065948

PATIENT
  Age: 57 Year
  Sex: Male
  Weight: 122 kg

DRUGS (22)
  1. TORSEMIDE [Concomitant]
     Dosage: ONE TABLE EVERY MORNING AND 1/2 TABLET EVERY EVENING
  2. ZAROXOLYN [Concomitant]
  3. IMDUR [Concomitant]
  4. FEXOFENADINE [Concomitant]
     Route: 048
  5. SOLOSTAR [Suspect]
  6. OMEPRAZOLE [Concomitant]
  7. RENAGEL [Concomitant]
     Dosage: 3 TABS WITH BREAKFAST, 3 TABS WITH LUNCH AND 3 TABS WITH DINNER
  8. COENZYME Q10 [Concomitant]
  9. NORTRIPTYLINE HCL [Concomitant]
  10. LANTUS [Suspect]
     Dosage: DOSE:80 UNIT(S)
     Route: 058
  11. VITAMIN D [Concomitant]
     Dosage: DOSE:50000 UNIT(S)
  12. METHOCARBAMOL [Concomitant]
  13. METHOCARBAMOL [Concomitant]
     Dosage: 2 TABLETS DURING DIALYSIS AS NEEDED
  14. ATORVASTATIN CALCIUM [Concomitant]
  15. ALLOPURINOL [Concomitant]
  16. FLUTICASONE PROPIONATE [Concomitant]
     Dosage: 2 SPRAYS IN EACH NOSTRIL DAILY
  17. APIDRA [Suspect]
     Dosage: SLIDING SCALE DOSE:100 UNIT(S)
     Route: 058
  18. CALCITRIOL [Concomitant]
  19. CARVEDILOL [Concomitant]
     Dosage: 1/2 TABLET TWICE A DAY
  20. DOCUSATE SODIUM [Concomitant]
  21. VICODIN [Concomitant]
     Dosage: 5-500 MG
  22. MINERALS NOS [Concomitant]

REACTIONS (1)
  - RENAL FAILURE CHRONIC [None]
